FAERS Safety Report 6456113-6 (Version None)
Quarter: 2009Q4

REPORT INFORMATION
  Report Type: 
  Country: None (occurrence: None)
  Receive Date: 20091125
  Receipt Date: 20091117
  Transmission Date: 20100525
  Serious: Yes (Other)
  Sender: FDA-Public Use
  Company Number: CA-JNJFOC-20090105289

PATIENT
  Sex: Female
  Weight: 77.11 kg

DRUGS (5)
  1. REMICADE [Suspect]
     Route: 042
  2. REMICADE [Suspect]
     Route: 042
  3. REMICADE [Suspect]
     Indication: PSORIASIS
     Route: 042
  4. LIPITOR [Concomitant]
  5. CARBOCAL D [Concomitant]

REACTIONS (1)
  - CARPAL TUNNEL SYNDROME [None]
